FAERS Safety Report 5220910-5 (Version None)
Quarter: 2007Q1

REPORT INFORMATION
  Report Type: 
  Country: None (occurrence: None)
  Receive Date: 20070125
  Receipt Date: 20070125
  Transmission Date: 20070707
  Serious: Yes (Hospitalization)
  Sender: FDA-Public Use
  Company Number: None

PATIENT
  Sex: Male
  Weight: 90.7194 kg

DRUGS (3)
  1. ZITHROMAX [Suspect]
     Indication: SINUSITIS
     Dosage: 250MG, PO, QD PRIOR TO ADMISSION
     Route: 048
  2. AVAPRO [Concomitant]
  3. LIPITOR [Concomitant]

REACTIONS (3)
  - INSOMNIA [None]
  - NERVOUSNESS [None]
  - TREMOR [None]
